FAERS Safety Report 16004025 (Version 3)
Quarter: 2019Q1

REPORT INFORMATION
  Report Type: Report from Study
  Country: DE (occurrence: DE)
  Receive Date: 20190225
  Receipt Date: 20190301
  Transmission Date: 20190418
  Serious: Yes (Hospitalization, Other)
  Sender: FDA-Public Use
  Company Number: DE-ACCORD-109376

PATIENT
  Age: 79 Year
  Sex: Female
  Weight: 66 kg

DRUGS (9)
  1. ZOMETA [Suspect]
     Active Substance: ZOLEDRONIC ACID
     Indication: METASTASES TO BONE
     Dosage: UNK
     Route: 042
     Dates: start: 20170121
  2. PALBOCICLIB [Suspect]
     Active Substance: PALBOCICLIB
     Indication: BREAST CANCER
     Dosage: 125 MG, QD
     Route: 048
     Dates: start: 20170206
  3. GABAPENTIN. [Concomitant]
     Active Substance: GABAPENTIN
     Indication: INFECTION
     Dosage: UNK
     Route: 048
     Dates: start: 20170427, end: 20170427
  4. PENICILLIN V-RATIOPHARM [Concomitant]
     Active Substance: PENICILLIN V
     Indication: INFECTION
     Dosage: UNK
     Route: 065
     Dates: start: 20170411, end: 20170421
  5. PALBOCICLIB [Suspect]
     Active Substance: PALBOCICLIB
     Indication: BREAST CANCER
     Dosage: 125 MG, DAILY, ALSO RECEIVED 125 MG FROM 06-FEB-2017.
     Route: 048
     Dates: start: 20170217
  6. NOVAMINSULFON-RATIOPHARM [Concomitant]
     Active Substance: METAMIZOLE
     Indication: BONE PAIN
     Dosage: UNK
     Route: 065
     Dates: start: 20170109
  7. ZOLEDRONATE [Suspect]
     Active Substance: ZOLEDRONIC ACID
     Indication: BREAST CANCER METASTATIC
     Route: 042
     Dates: start: 20170121
  8. LETROZOLE. [Suspect]
     Active Substance: LETROZOLE
     Indication: BREAST CANCER
     Dosage: 2.5 MG, QD, ALSO RECEIVED AS 2.5 MG DOSE FROM 17-FEB-2017.
     Route: 048
     Dates: start: 20170206
  9. VIGANTOLETTEN [Concomitant]
     Active Substance: CHOLECALCIFEROL
     Indication: PROPHYLAXIS
     Dosage: UNK
     Route: 065
     Dates: start: 20170109

REACTIONS (1)
  - Osteonecrosis of jaw [Recovered/Resolved]

NARRATIVE: CASE EVENT DATE: 20180302
